FAERS Safety Report 14274782 (Version 1)
Quarter: 2017Q4

REPORT INFORMATION
  Report Type: Report from Study
  Country: US (occurrence: US)
  Receive Date: 20171212
  Receipt Date: 20171212
  Transmission Date: 20180321
  Serious: Yes (Hospitalization, Other)
  Sender: FDA-Public Use
  Company Number: US-BAYER-2017-231743

PATIENT
  Age: 78 Year
  Sex: Male

DRUGS (1)
  1. STIVARGA [Suspect]
     Active Substance: REGORAFENIB
     Indication: COLON CANCER
     Dosage: 160 MG, QD
     Route: 048
     Dates: start: 20171016

REACTIONS (4)
  - Gait inability [None]
  - Asthenia [None]
  - Dysstasia [None]
  - Hospitalisation [None]

NARRATIVE: CASE EVENT DATE: 20171115
